FAERS Safety Report 5338752-9 (Version None)
Quarter: 2007Q2

REPORT INFORMATION
  Report Type: 
  Country: None (occurrence: None)
  Receive Date: 20070328
  Receipt Date: 20070119
  Transmission Date: 20071010
  Serious: Yes (Other)
  Sender: FDA-Public Use
  Company Number: 13601349

PATIENT
  Sex: Male
  Weight: 81.63 kg

DRUGS (6)
  1. EMSAM [Suspect]
     Indication: DEPRESSION
     Dosage: 6 MILLIGRAM, 1 DAY TD
  2. LAMICTAL [Concomitant]
  3. LITHIUM CARBONATE [Concomitant]
  4. NEURONTIN [Concomitant]
  5. KLONOPIN [Concomitant]
  6. GEODON [Concomitant]

REACTIONS (4)
  - DRUG INEFFECTIVE [None]
  - INSOMNIA [None]
  - MANIA [None]
  - SUICIDAL IDEATION [None]
